FAERS Safety Report 10645435 (Version 1)
Quarter: 2014Q4

REPORT INFORMATION
  Report Type: Spontaneous
  Country: US (occurrence: None)
  Receive Date: 20141210
  Receipt Date: 20141210
  Transmission Date: 20150529
  Serious: No
  Sender: FDA-Public Use
  Company Number: None

PATIENT
  Age: 96 Year
  Sex: Female
  Weight: 74.84 kg

DRUGS (16)
  1. IPRAT-ALBUT [Concomitant]
  2. SENNA-LAX [Concomitant]
     Active Substance: SENNOSIDES A AND B
  3. GENERIC ROBITUSSIN [Concomitant]
  4. CLONAZEPAM. [Concomitant]
     Active Substance: CLONAZEPAM
  5. OMEPRAZOLE. [Concomitant]
     Active Substance: OMEPRAZOLE
  6. ATORVASTATIN [Concomitant]
     Active Substance: ATORVASTATIN
  7. SPIRONOLACTONE. [Concomitant]
     Active Substance: SPIRONOLACTONE
  8. BISACODYL. [Concomitant]
     Active Substance: BISACODYL
  9. ASPIRIN. [Concomitant]
     Active Substance: ASPIRIN
  10. SIMBRINZA [Suspect]
     Active Substance: BRIMONIDINE TARTRATE\BRINZOLAMIDE
     Indication: ANGLE CLOSURE GLAUCOMA
     Dosage: 1 DROP LEFT EYE
     Route: 047
  11. FUROSEMIDE. [Concomitant]
     Active Substance: FUROSEMIDE
  12. LATANOPROST. [Concomitant]
     Active Substance: LATANOPROST
  13. ALBUTEROL. [Concomitant]
     Active Substance: ALBUTEROL
  14. DOCUSATE [Concomitant]
     Active Substance: DOCUSATE
  15. PREDNISONE. [Concomitant]
     Active Substance: PREDNISONE
  16. CARVEDILOL. [Concomitant]
     Active Substance: CARVEDILOL

REACTIONS (3)
  - Rash erythematous [None]
  - Eye swelling [None]
  - Product quality issue [None]

NARRATIVE: CASE EVENT DATE: 20141108
